FAERS Safety Report 24269061 (Version 2)
Quarter: 2024Q4

REPORT INFORMATION
  Report Type: Report from Study
  Country: BR (occurrence: BR)
  Receive Date: 20240830
  Receipt Date: 20241024
  Transmission Date: 20250114
  Serious: Yes (Other)
  Sender: TAKEDA
  Company Number: BR-TAKEDA-2024TUS086893

PATIENT
  Age: 45 Year

DRUGS (2)
  1. ANTI-INHIBITOR COAGULANT COMPLEX [Suspect]
     Active Substance: ANTI-INHIBITOR COAGULANT COMPLEX
     Indication: Haemophilia
     Dosage: 90 MICROGRAM/KILOGRAM
     Route: 065
     Dates: start: 201909
  2. ANTI-INHIBITOR COAGULANT COMPLEX [Suspect]
     Active Substance: ANTI-INHIBITOR COAGULANT COMPLEX
     Indication: Prophylaxis

REACTIONS (2)
  - Treatment failure [Unknown]
  - Haemarthrosis [Unknown]
